FAERS Safety Report 6706603-3 (Version None)
Quarter: 2010Q2

REPORT INFORMATION
  Report Type: 
  Country: None (occurrence: None)
  Receive Date: 20100503
  Receipt Date: 20100426
  Transmission Date: 20101027
  Serious: Yes (Hospitalization, Other)
  Sender: FDA-Public Use
  Company Number: US-TEVA-232506USA

PATIENT
  Age: 82 Year
  Sex: Female

DRUGS (1)
  1. ATROPINE SULFATE, INJECTION, 0.4 MG/ML,  IN 1ML OR 20ML VOL [Suspect]
     Route: 042

REACTIONS (1)
  - STRESS CARDIOMYOPATHY [None]
